FAERS Safety Report 9783856 (Version 3)
Quarter: 2014Q1

REPORT INFORMATION
  Report Type: Spontaneous
  Country: JP (occurrence: JP)
  Receive Date: 20131226
  Receipt Date: 20140107
  Transmission Date: 20141002
  Serious: Yes (Hospitalization)
  Sender: FDA-Public Use
  Company Number: JP-JNJFOC-20131213634

PATIENT
  Age: 30 Year
  Sex: Male

DRUGS (2)
  1. REMICADE [Suspect]
     Indication: CROHN^S DISEASE
     Route: 042
  2. IMURAN [Suspect]
     Indication: CROHN^S DISEASE
     Route: 048

REACTIONS (3)
  - Bone marrow failure [Recovering/Resolving]
  - Amyloidosis [Recovering/Resolving]
  - Therapeutic response decreased [Not Recovered/Not Resolved]
